FAERS Safety Report 4554330-3 (Version None)
Quarter: 2005Q1

REPORT INFORMATION
  Report Type: 
  Country: None (occurrence: None)
  Receive Date: 20050118
  Receipt Date: 20050111
  Transmission Date: 20050727
  Serious: Yes (Death)
  Sender: FDA-Public Use
  Company Number: PHRM2005FR00499

PATIENT
  Age: 55 Year
  Sex: Female

DRUGS (6)
  1. MEPRONIZINE [Suspect]
     Dosage: 1 DF, QD
     Dates: start: 20041213, end: 20041219
  2. SOPHIDONE [Suspect]
     Dosage: 8 MG, QD
     Route: 048
     Dates: start: 20041216, end: 20041223
  3. EQUANIL [Suspect]
     Dosage: 250 MG, QD
     Route: 048
     Dates: start: 20041214, end: 20041219
  4. LASILIX [Concomitant]
     Dosage: 60 MG, QD
     Route: 042
     Dates: start: 20041214, end: 20041215
  5. SOLU-MEDROL [Concomitant]
     Dosage: 120 MG, TID
     Route: 042
     Dates: start: 20041213, end: 20041217
  6. AREDIA [Suspect]
     Indication: METASTASES TO BONE
     Dosage: 90 MG, QMO
     Route: 042
     Dates: start: 20041216, end: 20041216

REACTIONS (2)
  - FLUID REPLACEMENT [None]
  - RENAL FAILURE ACUTE [None]
